FAERS Safety Report 6006371-7 (Version None)
Quarter: 2008Q4

REPORT INFORMATION
  Report Type: 
  Country: None (occurrence: None)
  Receive Date: 20081217
  Receipt Date: 20070223
  Transmission Date: 20090506
  Serious: Yes (Other)
  Sender: FDA-Public Use
  Company Number: US-BAXTER-2008BH010181

PATIENT
  Age: 67 Year
  Sex: Male

DRUGS (4)
  1. GAMMAGARD LIQUID [Suspect]
     Indication: MULTIPLE SCLEROSIS
     Dosage: DOSE UNIT:UNKNOWN
     Route: 042
  2. GAMMAGARD LIQUID [Suspect]
     Indication: NEUROPATHY PERIPHERAL
     Dosage: DOSE UNIT:UNKNOWN
     Route: 042
  3. GAMUNEX [Suspect]
     Indication: MULTIPLE SCLEROSIS
     Dosage: DOSE UNIT:UNKNOWN
     Route: 042
  4. GAMUNEX [Suspect]
     Indication: NEUROPATHY PERIPHERAL
     Dosage: DOSE UNIT:UNKNOWN
     Route: 042

REACTIONS (2)
  - ANAPHYLACTOID REACTION [None]
  - DRUG INTOLERANCE [None]
